FAERS Safety Report 8184013-2 (Version None)
Quarter: 2012Q1

REPORT INFORMATION
  Report Type: 
  Country: None (occurrence: None)
  Receive Date: 20120305
  Receipt Date: 20120224
  Transmission Date: 20120608
  Serious: Yes (Other)
  Sender: FDA-Public Use
  Company Number: US-ROCHE-794894

PATIENT
  Sex: Male
  Weight: 63.106 kg

DRUGS (3)
  1. ACCUTANE [Suspect]
     Indication: ACNE
     Route: 065
     Dates: start: 20090201, end: 20090601
  2. SOTRET [Suspect]
     Indication: ACNE
     Dates: start: 20060301, end: 20060801
  3. SOTRET [Suspect]
     Dates: start: 20090201, end: 20090601

REACTIONS (4)
  - DEPRESSION [None]
  - COLITIS ULCERATIVE [None]
  - CROHN'S DISEASE [None]
  - IRRITABLE BOWEL SYNDROME [None]
